FAERS Safety Report 6260903-2 (Version None)
Quarter: 2009Q3

REPORT INFORMATION
  Report Type: 
  Country: None (occurrence: None)
  Receive Date: 20090707
  Receipt Date: 20090623
  Transmission Date: 20100115
  Serious: Yes (Death)
  Sender: FDA-Public Use
  Company Number: 2009000966

PATIENT
  Age: 66 Year
  Sex: Male

DRUGS (5)
  1. ERLOTINIB (ERLOTINIB) (TABLET) (ERLOTINIB) [Suspect]
     Indication: NON-SMALL CELL LUNG CANCER
     Dosage: (150 MG, QD), ORAL
     Route: 048
     Dates: start: 20080313
  2. DIGOXIN [Concomitant]
  3. TIOTROPIUM BROMIDE [Concomitant]
  4. DOCETAXEL [Concomitant]
  5. CARBOPLATIN [Concomitant]

REACTIONS (1)
  - PNEUMONIA [None]
